FAERS Safety Report 9548509 (Version 2)
Quarter: 2013Q4

REPORT INFORMATION
  Report Type: Spontaneous
  Country: US (occurrence: US)
  Receive Date: 20130924
  Receipt Date: 20131018
  Transmission Date: 20140711
  Serious: No
  Sender: FDA-Public Use
  Company Number: US-PFIZER INC-2013272688

PATIENT
  Age: 78 Year
  Sex: Male
  Weight: 103 kg

DRUGS (2)
  1. TOVIAZ [Suspect]
     Indication: HYPERTONIC BLADDER
     Dosage: 4 MG, 1X/DAY
     Route: 048
     Dates: start: 20130806, end: 20130918
  2. TOVIAZ [Suspect]
     Dosage: 8 MG, UNK
     Route: 048
     Dates: start: 20130918

REACTIONS (4)
  - Drug dispensing error [Unknown]
  - Expired drug administered [Unknown]
  - Drug effect incomplete [Unknown]
  - Drug ineffective [Unknown]
